FAERS Safety Report 10016431 (Version 1)
Quarter: 2014Q1

REPORT INFORMATION
  Report Type: Spontaneous
  Country: US (occurrence: US)
  Receive Date: 20140317
  Receipt Date: 20140317
  Transmission Date: 20141002
  Serious: Yes (Death, Hospitalization, Other)
  Sender: FDA-Public Use
  Company Number: US-ACTAVIS-2014-04594

PATIENT
  Age: 23 Year
  Sex: Male

DRUGS (2)
  1. ALPRAZOLAM (AELLC) [Suspect]
     Indication: DRUG ABUSE
     Dosage: 3 MG, SINGLE
     Route: 045
  2. METHADONE [Suspect]
     Indication: DRUG ABUSE
     Dosage: 40 MG, SINGLE
     Route: 048

REACTIONS (6)
  - Brain injury [Fatal]
  - Rhabdomyolysis [Fatal]
  - Multi-organ failure [Fatal]
  - Pulmonary oedema [Fatal]
  - Incorrect route of drug administration [Unknown]
  - Drug abuse [Unknown]
